FAERS Safety Report 16969998 (Version 1)
Quarter: 2019Q4

REPORT INFORMATION
  Report Type: Spontaneous
  Country: FR (occurrence: FR)
  Receive Date: 20191029
  Receipt Date: 20191029
  Transmission Date: 20200122
  Serious: Yes (Other)
  Sender: FDA-Public Use
  Company Number: FR-009507513-1910FRA014148

PATIENT
  Age: 53 Year
  Sex: Female

DRUGS (1)
  1. KEYTRUDA [Suspect]
     Active Substance: PEMBROLIZUMAB
     Indication: MALIGNANT MELANOMA
     Dosage: 130 MILLIGRAM, CYCLICAL (POWDER FOR SOLUTION TO DILUTE FOR  INFUSION)
     Route: 041
     Dates: start: 20180430

REACTIONS (10)
  - Eyelid oedema [Recovering/Resolving]
  - Hypothyroidism [Recovered/Resolved with Sequelae]
  - Myalgia [Recovering/Resolving]
  - Depressive symptom [Recovering/Resolving]
  - Weight increased [Recovering/Resolving]
  - Asthenia [Recovering/Resolving]
  - Muscle spasms [Recovered/Resolved]
  - Muscle contractions involuntary [Recovering/Resolving]
  - Thyroiditis [Not Recovered/Not Resolved]
  - Blood creatine phosphokinase increased [Recovering/Resolving]

NARRATIVE: CASE EVENT DATE: 20180611
